FAERS Safety Report 8762305 (Version 1)
Quarter: 2012Q4

REPORT INFORMATION
  Report Type: 
  Country: GB (occurrence: GB)
  Receive Date: 20120829
  Receipt Date: 20120829
  Transmission Date: 20130627
  Serious: Yes (Hospitalization)
  Sender: FDA-Public Use
  Company Number: GB-PFIZER INC-2012208241

PATIENT
  Age: 73 Year
  Sex: Male

DRUGS (1)
  1. TORVAST [Suspect]
     Dosage: 10 mg, UNK
     Dates: start: 20120503

REACTIONS (8)
  - Malaise [Unknown]
  - Discomfort [Unknown]
  - Arthralgia [Unknown]
  - Hiccups [Unknown]
  - Dyspepsia [Unknown]
  - Frequent bowel movements [Unknown]
  - Chest discomfort [Unknown]
  - Expired drug administered [Unknown]
